FAERS Safety Report 15343815 (Version 3)
Quarter: 2019Q1

REPORT INFORMATION
  Report Type: Spontaneous
  Country: US (occurrence: US)
  Receive Date: 20180903
  Receipt Date: 20190328
  Transmission Date: 20190417
  Serious: No
  Sender: FDA-Public Use
  Company Number: US-BAUSCH-BL-2018-012244

PATIENT
  Age: 61 Year
  Sex: Male
  Weight: 71.4 kg

DRUGS (5)
  1. TARGRETIN [Suspect]
     Active Substance: BEXAROTENE
     Dosage: VARIOUS DOSES THAT WENT UP TO 4 PILLS A DAY (UNKNOWN)
     Route: 048
  2. LEVOTHYROXINE. [Concomitant]
     Active Substance: LEVOTHYROXINE
     Indication: PRODUCT USED FOR UNKNOWN INDICATION
     Route: 065
  3. TARGRETIN [Suspect]
     Active Substance: BEXAROTENE
     Route: 048
     Dates: start: 20181203
  4. TARGRETIN [Suspect]
     Active Substance: BEXAROTENE
     Indication: MYCOSIS FUNGOIDES
     Dosage: 1-2 PILLS
     Route: 048
     Dates: start: 2013
  5. TARGRETIN [Suspect]
     Active Substance: BEXAROTENE
     Route: 048
     Dates: end: 201806

REACTIONS (6)
  - White blood cell count decreased [Recovering/Resolving]
  - Blood triglycerides increased [Recovering/Resolving]
  - Vertigo [Recovering/Resolving]
  - High density lipoprotein decreased [Recovering/Resolving]
  - Low density lipoprotein increased [Recovering/Resolving]
  - Neutrophil count decreased [Recovering/Resolving]

NARRATIVE: CASE EVENT DATE: 20181203
